FAERS Safety Report 9511153 (Version 1)
Quarter: 2013Q1

REPORT INFORMATION
  Report Type: Spontaneous
  Country: US (occurrence: None)
  Receive Date: 20130305
  Receipt Date: 20130305
  Transmission Date: 20140127
  Serious: Yes (Other)
  Sender: FDA-Public Use
  Company Number: 163-21880-11083048

PATIENT
  Age: 65 Year
  Sex: Female

DRUGS (4)
  1. REVLIMID ?(LENALIDOMIDE 10 MILLIGRAM, CAPSULES [Suspect]
     Indication: PLASMA CELL MYELOMA
     Route: 048
     Dates: start: 20110709, end: 20110711
  2. GABAPENTIN(GABAPENTIN) [Concomitant]
  3. ISONIAZIDE(ISONIAZIDE) [Concomitant]
  4. OMEPRAZOLE(OMEPRAZOLE) [Concomitant]

REACTIONS (2)
  - Hypersensitivity [None]
  - Rash [None]
